FAERS Safety Report 9916616 (Version 1)
Quarter: 2014Q1

REPORT INFORMATION
  Report Type: Spontaneous
  Country: IT (occurrence: None)
  Receive Date: 20140219
  Receipt Date: 20140219
  Transmission Date: 20141002
  Serious: Yes (Other)
  Sender: FDA-Public Use
  Company Number: AUR-APL-2014-01855

PATIENT
  Age: 66 Year
  Sex: Male

DRUGS (1)
  1. AMOXICILLIN [Suspect]
     Indication: TOOTH ABSCESS
     Dosage: (1 DOSAGE  FORMS, TOTAL), ORAL
     Route: 048
     Dates: start: 20131218

REACTIONS (8)
  - Abdominal pain upper [None]
  - Abdominal pain [None]
  - Nausea [None]
  - Diarrhoea [None]
  - Erythema [None]
  - Drug intolerance [None]
  - Pancreatic disorder [None]
  - Cholecystitis [None]
